FAERS Safety Report 25394640 (Version 1)
Quarter: 2025Q2

REPORT INFORMATION
  Report Type: Spontaneous
  Country: FR (occurrence: FR)
  Receive Date: 20250604
  Receipt Date: 20250604
  Transmission Date: 20250716
  Serious: No
  Sender: ALEXION PHARMACEUTICALS
  Company Number: FR-AstraZeneca-2024A186151

PATIENT
  Age: 31 Year

DRUGS (1)
  1. FASENRA [Suspect]
     Active Substance: BENRALIZUMAB
     Indication: Asthma

REACTIONS (3)
  - Product quality issue [Unknown]
  - Device physical property issue [Unknown]
  - Drug dose omission by device [Unknown]
